FAERS Safety Report 6186205-0 (Version None)
Quarter: 2009Q2

REPORT INFORMATION
  Report Type: 
  Country: None (occurrence: None)
  Receive Date: 20090507
  Receipt Date: 20090507
  Transmission Date: 20091009
  Serious: No
  Sender: FDA-Public Use
  Company Number: None

PATIENT
  Sex: Male
  Weight: 95.2554 kg

DRUGS (4)
  1. TOPAMAX [Suspect]
     Indication: DEPRESSION
     Dosage: 50-300MG ONCE DAILY PO
     Route: 048
     Dates: start: 20030301, end: 20030501
  2. TOPAMAX [Suspect]
     Indication: MANIA
     Dosage: 50-300MG ONCE DAILY PO
     Route: 048
     Dates: start: 20030301, end: 20030501
  3. VENLAFAXINE HCL [Concomitant]
  4. QUETIAPINE FUMARATE [Concomitant]

REACTIONS (4)
  - AMNESIA [None]
  - DRUG INEFFECTIVE [None]
  - DYSGEUSIA [None]
  - TOBACCO USER [None]
